FAERS Safety Report 17880396 (Version 1)
Quarter: 2020Q2

REPORT INFORMATION
  Report Type: Spontaneous
  Country: US (occurrence: US)
  Receive Date: 20200610
  Receipt Date: 20200610
  Transmission Date: 20200714
  Serious: Yes (Other)
  Sender: FDA-Public Use
  Company Number: US-PFIZER INC-2020221791

PATIENT
  Age: 26 Year
  Sex: Male
  Weight: 89 kg

DRUGS (8)
  1. DIAZEPAM. [Suspect]
     Active Substance: DIAZEPAM
     Dosage: 10 MG
     Route: 030
  2. FENTANYL CITRATE. [Suspect]
     Active Substance: FENTANYL CITRATE
     Dosage: 0.6 MG
     Route: 042
  3. TUBOCURARINE. [Suspect]
     Active Substance: TUBOCURARINE
     Dosage: 6 MG
     Route: 042
  4. SUCCINYLCHOLINE CHLORIDE. [Suspect]
     Active Substance: SUCCINYLCHOLINE CHLORIDE
     Dosage: 80 MG
     Route: 042
  5. LIDOCAINE HCL [Suspect]
     Active Substance: LIDOCAINE HYDROCHLORIDE
     Dosage: UNK (5 CC OF LIDOCAINE 1 PER CENT THROUGH AN ATOMIZER)
  6. DROPERIDOL. [Suspect]
     Active Substance: DROPERIDOL
     Dosage: 17.5 MG
     Route: 042
  7. PENTOBARBITONE SODIUM [Suspect]
     Active Substance: PENTOBARBITAL SODIUM
     Dosage: 100 MG
     Route: 030
  8. ATROPINE SULFATE. [Suspect]
     Active Substance: ATROPINE SULFATE
     Dosage: 0.6 MG
     Route: 030

REACTIONS (1)
  - Hyperthermia malignant [Recovered/Resolved]
